FAERS Safety Report 6686903-6 (Version None)
Quarter: 2010Q2

REPORT INFORMATION
  Report Type: 
  Country: None (occurrence: None)
  Receive Date: 20100416
  Receipt Date: 20100416
  Transmission Date: 20101027
  Serious: Yes (Hospitalization, Other)
  Sender: FDA-Public Use
  Company Number: None

PATIENT
  Sex: Male
  Weight: 78.0187 kg

DRUGS (1)
  1. FENOFIBRATE [Suspect]
     Dosage: ONE DAILY
     Dates: start: 20100211, end: 20100320

REACTIONS (5)
  - ABASIA [None]
  - CARDIAC FAILURE CONGESTIVE [None]
  - DYSPNOEA [None]
  - KIDNEY SMALL [None]
  - MUSCULAR WEAKNESS [None]
